FAERS Safety Report 9959449 (Version 1)
Quarter: 2014Q1

REPORT INFORMATION
  Report Type: Report from Study
  Country: US (occurrence: US)
  Receive Date: 20140305
  Receipt Date: 20140305
  Transmission Date: 20141002
  Serious: No
  Sender: FDA-Public Use
  Company Number: US-ABBVIE-13P-163-1105667-00

PATIENT
  Age: 84 Year
  Sex: Female

DRUGS (9)
  1. HUMIRA [Suspect]
     Indication: CROHN^S DISEASE
     Dates: start: 20130419
  2. BENAZEPRIL [Concomitant]
     Indication: HYPERTENSION
     Dosage: DAILY
  3. AMILORIDE [Concomitant]
     Indication: HYPERTENSION
     Dosage: DAILY
  4. ALPRAZOLAM [Concomitant]
     Indication: ANXIETY
  5. PRILOSEC [Concomitant]
     Indication: GASTROOESOPHAGEAL REFLUX DISEASE
     Dosage: DAILY
  6. ASPIRIN [Concomitant]
     Indication: PRODUCT USED FOR UNKNOWN INDICATION
     Dosage: BABY ASPIRIN DAILY
  7. MULTIVITAMIN [Concomitant]
     Indication: PRODUCT USED FOR UNKNOWN INDICATION
     Dosage: DAILY
  8. CALCIUM [Concomitant]
     Indication: PRODUCT USED FOR UNKNOWN INDICATION
     Dosage: DAILY
  9. POTASSIUM [Concomitant]
     Indication: MUSCLE SPASMS
     Dosage: DAILY

REACTIONS (1)
  - Arthralgia [Not Recovered/Not Resolved]
